FAERS Safety Report 5053174-6 (Version None)
Quarter: 2006Q3

REPORT INFORMATION
  Report Type: 
  Country: None (occurrence: None)
  Receive Date: 20060717
  Receipt Date: 20060707
  Transmission Date: 20061208
  Serious: Yes (Other)
  Sender: FDA-Public Use
  Company Number: GB-MERCK-0607GBR00047

PATIENT
  Age: 10 Year
  Sex: Female

DRUGS (1)
  1. SINGULAIR [Suspect]
     Route: 048
     Dates: start: 20060604, end: 20060609

REACTIONS (2)
  - ASTHMA [None]
  - VASCULITIS [None]
